FAERS Safety Report 10065242 (Version 1)
Quarter: 2014Q1

REPORT INFORMATION
  Report Type: Spontaneous
  Country: US (occurrence: None)
  Receive Date: 20140328
  Receipt Date: 20140328
  Transmission Date: 20141002
  Serious: No
  Sender: FDA-Public Use
  Company Number: 1000052252

PATIENT
  Age: 82 Year
  Sex: Female

DRUGS (6)
  1. LINZESS (LINACLOTIDE) (145 MICROGRAM, CAPSULES) [Suspect]
     Indication: IRRITABLE BOWEL SYNDROME
     Dosage: 145 MCG, 1 IN 1 D
     Route: 048
     Dates: start: 20131211, end: 2013
  2. METAMUCIL [Suspect]
     Indication: IRRITABLE BOWEL SYNDROME
  3. LORAZEPAM [Concomitant]
  4. MOTRIN [Concomitant]
  5. ROBAXIN [Concomitant]
  6. LIDODERM [Concomitant]

REACTIONS (1)
  - Diarrhoea [None]
